FAERS Safety Report 9687099 (Version 2)
Quarter: 2013Q4

REPORT INFORMATION
  Report Type: Spontaneous
  Country: IT (occurrence: IT)
  Receive Date: 20131113
  Receipt Date: 20131211
  Transmission Date: 20140711
  Serious: Yes (Other)
  Sender: FDA-Public Use
  Company Number: PHHY2013IT126677

PATIENT
  Age: 48 Year
  Sex: Female

DRUGS (5)
  1. VOLTAREN OFTA [Suspect]
     Indication: EYE INFLAMMATION
     Dosage: 1 DRP, QID
     Route: 047
     Dates: start: 20131009, end: 20131013
  2. AZYTER [Suspect]
     Indication: CONJUNCTIVITIS
     Dosage: 1 DRP, TID
     Dates: start: 20130927, end: 20131008
  3. MONOFLOXOFTA [Suspect]
     Indication: CONJUNCTIVITIS
     Dosage: 1 DRP, QID
     Route: 047
     Dates: start: 20131009, end: 20131010
  4. OFTAQUIX [Suspect]
     Indication: CONJUNCTIVITIS
     Dosage: UNK DRP, EVERY DAY
     Route: 047
     Dates: start: 20131010, end: 20131013
  5. HYALISTIL [Concomitant]
     Indication: DRY EYE
     Dosage: UNK UKN, UNK
     Dates: start: 20130927

REACTIONS (3)
  - Eyelid oedema [Not Recovered/Not Resolved]
  - Adverse reaction [Not Recovered/Not Resolved]
  - Conjunctival hyperaemia [Not Recovered/Not Resolved]
